FAERS Safety Report 7044670-0 (Version None)
Quarter: 2010Q4

REPORT INFORMATION
  Report Type: 
  Country: None (occurrence: None)
  Receive Date: 20101014
  Receipt Date: 20100929
  Transmission Date: 20110411
  Serious: Yes (Hospitalization)
  Sender: FDA-Public Use
  Company Number: PHHY2010US65929

PATIENT

DRUGS (3)
  1. DIOVAN HCT [Suspect]
     Indication: HYPERTENSION
  2. DIURETICS [Concomitant]
  3. BYSTOLIC [Concomitant]

REACTIONS (4)
  - ASTHENIA [None]
  - HYPOCHLORAEMIA [None]
  - HYPOKALAEMIA [None]
  - HYPONATRAEMIA [None]
